FAERS Safety Report 6652902-3 (Version None)
Quarter: 2010Q1

REPORT INFORMATION
  Report Type: 
  Country: None (occurrence: None)
  Receive Date: 20100326
  Receipt Date: 20100319
  Transmission Date: 20100710
  Serious: Yes (Hospitalization)
  Sender: FDA-Public Use
  Company Number: JP-ASTRAZENECA-2010SE07781

PATIENT
  Age: 35 Year
  Sex: Female
  Weight: 45 kg

DRUGS (4)
  1. ANAPEINE [Suspect]
     Indication: EPIDURAL ANAESTHESIA
     Dosage: 150ML
     Route: 008
     Dates: start: 20100217, end: 20100218
  2. FENTANYL [Concomitant]
     Indication: ANALGESIC THERAPY
     Dosage: 10ML
     Route: 008
     Dates: start: 20100217, end: 20100218
  3. DROLEPTAN [Concomitant]
     Indication: ANALGESIC THERAPY
     Dosage: 2ML
     Route: 008
     Dates: start: 20100217, end: 20100218
  4. SEISHOKU [Concomitant]
     Indication: ANALGESIC THERAPY
     Dosage: 38ML
     Route: 008
     Dates: start: 20100217, end: 20100218

REACTIONS (1)
  - HYPOAESTHESIA [None]
